FAERS Safety Report 4523951-6 (Version None)
Quarter: 2004Q4

REPORT INFORMATION
  Report Type: 
  Country: None (occurrence: None)
  Receive Date: 20041209
  Receipt Date: 20041122
  Transmission Date: 20050328
  Serious: Yes (Hospitalization)
  Sender: FDA-Public Use
  Company Number: A03200403954

PATIENT
  Age: 49 Year
  Sex: Male

DRUGS (3)
  1. PLAVIX [Suspect]
     Indication: CORONARY ARTERY DISEASE
     Dosage: 75 MG QD - ORAL
     Route: 048
     Dates: start: 20030701
  2. LIPTOR - ATORVASTATIN - TABLET - 10 MG [Suspect]
     Dosage: 10 MG QD - ORAL
     Route: 048
     Dates: start: 20030701
  3. METOPROLOL [Concomitant]

REACTIONS (1)
  - RESPIRATORY FAILURE [None]
